FAERS Safety Report 18845239 (Version 1)
Quarter: 2021Q1

REPORT INFORMATION
  Report Type: Report from Study
  Country: US (occurrence: US)
  Receive Date: 20210203
  Receipt Date: 20210203
  Transmission Date: 20210419
  Serious: No
  Sender: FDA-Public Use
  Company Number: US-EXELIXIS-CABO-20028501

PATIENT
  Age: 66 Year
  Sex: Female

DRUGS (2)
  1. CABOMETYX [Suspect]
     Active Substance: CABOZANTINIB S-MALATE
     Dosage: 60 MG, QD (MIDDLE OF NIGHT ? W/O FOOD)
     Dates: start: 20200207
  2. CABOMETYX [Suspect]
     Active Substance: CABOZANTINIB S-MALATE
     Indication: RENAL CELL CARCINOMA
     Dosage: 40 MG
     Dates: start: 202002

REACTIONS (7)
  - Urticaria [Recovered/Resolved]
  - Blood pressure increased [Unknown]
  - Diarrhoea [Recovering/Resolving]
  - Blood alkaline phosphatase increased [Unknown]
  - Oral pain [Unknown]
  - Dry mouth [Unknown]
  - Haematocrit increased [Unknown]

NARRATIVE: CASE EVENT DATE: 202002
